FAERS Safety Report 16753509 (Version 1)
Quarter: 2019Q3

REPORT INFORMATION
  Report Type: Spontaneous
  Country: US (occurrence: US)
  Receive Date: 20190829
  Receipt Date: 20190829
  Transmission Date: 20191005
  Serious: No
  Sender: FDA-Public Use
  Company Number: US-GLAXOSMITHKLINE-US2019153197

PATIENT

DRUGS (1)
  1. IMITREX [Suspect]
     Active Substance: SUMATRIPTAN SUCCINATE
     Indication: PRODUCT USED FOR UNKNOWN INDICATION
     Dosage: 25 MG, EVERY 2 HOUR
     Route: 065
     Dates: start: 20190821

REACTIONS (1)
  - Product label confusion [Unknown]

NARRATIVE: CASE EVENT DATE: 20190821
